FAERS Safety Report 4469444-6 (Version None)
Quarter: 2004Q4

REPORT INFORMATION
  Report Type: 
  Country: None (occurrence: None)
  Receive Date: 20041005
  Receipt Date: 20040922
  Transmission Date: 20050328
  Serious: Yes (Death, Hospitalization)
  Sender: FDA-Public Use
  Company Number: 2004069672

PATIENT
  Age: 88 Year
  Sex: Female

DRUGS (7)
  1. ZOLOFT [Suspect]
     Indication: ILL-DEFINED DISORDER
     Dosage: 50 MG (50 MG, INTERVAL: EVERY DAY), ORAL
     Route: 048
     Dates: end: 20040731
  2. DONEPEZIL (DONEPEZIL) [Suspect]
     Indication: DEMENTIA ALZHEIMER'S TYPE
     Dosage: 10 MG (INTERVAL: EVERY DAY), ORAL
     Route: 048
     Dates: start: 20040622
  3. ACENOCOUMAROL (ACENOCOUMAROL) [Suspect]
     Indication: ILL-DEFINED DISORDER
     Dosage: 2 MG (1 MG, 1 IN 1 D), ORAL
     Route: 048
  4. LEVOTHYROXINE SODIUM [Concomitant]
  5. ENALAPRIL MALEATE [Concomitant]
  6. FUROSEMIDE [Concomitant]
  7. BROMAZEPAM (BROMAZEPAM) [Concomitant]

REACTIONS (21)
  - ATRIAL FIBRILLATION [None]
  - BLOOD CREATININE INCREASED [None]
  - BLOOD PRESSURE DIASTOLIC DECREASED [None]
  - BUNDLE BRANCH BLOCK RIGHT [None]
  - CEREBRAL HAEMATOMA [None]
  - CEREBRAL HAEMORRHAGE [None]
  - CEREBRAL ISCHAEMIA [None]
  - CONFUSIONAL STATE [None]
  - CONVULSION [None]
  - DECEREBRATION [None]
  - EPILEPSY [None]
  - FALL [None]
  - HAEMORRHAGIC STROKE [None]
  - HEAD INJURY [None]
  - ISCHAEMIC STROKE [None]
  - LEFT VENTRICULAR FAILURE [None]
  - LOSS OF CONSCIOUSNESS [None]
  - MALAISE [None]
  - MYDRIASIS [None]
  - MYOCLONUS [None]
  - OVERDOSE [None]
